FAERS Safety Report 18254951 (Version 2)
Quarter: 2020Q4

REPORT INFORMATION
  Report Type: Spontaneous
  Country: US (occurrence: US)
  Receive Date: 20200911
  Receipt Date: 20201022
  Transmission Date: 20210113
  Serious: No
  Sender: FDA-Public Use
  Company Number: US-SA-2020SA243500

PATIENT

DRUGS (1)
  1. DUPIXENT [Suspect]
     Active Substance: DUPILUMAB
     Indication: DERMATITIS ATOPIC
     Dosage: 300 MG, QOW
     Route: 058
     Dates: start: 20190328

REACTIONS (6)
  - Peripheral swelling [Unknown]
  - Blister [Unknown]
  - Skin exfoliation [Unknown]
  - Insomnia [Unknown]
  - Peripheral coldness [Unknown]
  - Pustule [Unknown]

NARRATIVE: CASE EVENT DATE: 202008
